FAERS Safety Report 14256904 (Version 2)
Quarter: 2017Q4

REPORT INFORMATION
  Report Type: Report from Study
  Country: US (occurrence: US)
  Receive Date: 20171206
  Receipt Date: 20171228
  Transmission Date: 20180321
  Serious: Yes (Other)
  Sender: FDA-Public Use
  Company Number: US-JAZZ-2017-US-015787

PATIENT
  Age: 34 Year
  Sex: Female

DRUGS (26)
  1. XYREM [Suspect]
     Active Substance: SODIUM OXYBATE
     Indication: NARCOLEPSY
     Dosage: 2.5 G, BID
     Route: 048
     Dates: start: 201102, end: 201105
  2. HYDROCODONE BITARTRATE AND ACETAMINOPHEN [Concomitant]
     Active Substance: ACETAMINOPHEN\HYDROCODONE BITARTRATE
  3. TYLENOL EXTRA STRENGTH [Concomitant]
     Active Substance: ACETAMINOPHEN
  4. VIVACTIL [Concomitant]
     Active Substance: PROTRIPTYLINE HYDROCHLORIDE
  5. XYREM [Suspect]
     Active Substance: SODIUM OXYBATE
     Dosage: 2.25 G, BID
     Route: 048
     Dates: start: 201702, end: 201703
  6. FLEXERIL [Concomitant]
     Active Substance: CYCLOBENZAPRINE HYDROCHLORIDE
  7. AMBIEN [Concomitant]
     Active Substance: ZOLPIDEM TARTRATE
  8. MOBIC [Concomitant]
     Active Substance: MELOXICAM
  9. XYREM [Suspect]
     Active Substance: SODIUM OXYBATE
     Indication: CATAPLEXY
     Dosage: 3 G, BID
     Route: 048
     Dates: start: 201105, end: 201106
  10. PENICILLIN VK [Concomitant]
     Active Substance: PENICILLIN V POTASSIUM
  11. EFFEXOR [Concomitant]
     Active Substance: VENLAFAXINE HYDROCHLORIDE
  12. BUSPIRONE HCL [Concomitant]
     Active Substance: BUSPIRONE HYDROCHLORIDE
  13. ADDERALL [Concomitant]
     Active Substance: AMPHETAMINE ASPARTATE\AMPHETAMINE SULFATE\DEXTROAMPHETAMINE SACCHARATE\DEXTROAMPHETAMINE SULFATE
  14. CYCLOBENZAPRINE. [Concomitant]
     Active Substance: CYCLOBENZAPRINE
  15. XYREM [Suspect]
     Active Substance: SODIUM OXYBATE
     Dosage: 3.5 G, BID
     Route: 048
     Dates: start: 201106, end: 2015
  16. XYREM [Suspect]
     Active Substance: SODIUM OXYBATE
     Dosage: DOSE ADJUSTMENTS
     Route: 048
     Dates: start: 201703, end: 201709
  17. OLANZAPINE. [Concomitant]
     Active Substance: OLANZAPINE
  18. HYDROXYZINE PAM [Concomitant]
     Active Substance: HYDROXYZINE PAMOATE
  19. LEXAPRO [Concomitant]
     Active Substance: ESCITALOPRAM OXALATE
  20. OMEPRAZOLE. [Concomitant]
     Active Substance: OMEPRAZOLE
  21. RITALIN [Concomitant]
     Active Substance: METHYLPHENIDATE HYDROCHLORIDE
  22. ATIVAN [Concomitant]
     Active Substance: LORAZEPAM
  23. TRAZODONE [Concomitant]
     Active Substance: TRAZODONE HYDROCHLORIDE
  24. PROZAC [Concomitant]
     Active Substance: FLUOXETINE HYDROCHLORIDE
  25. KLONOPIN [Concomitant]
     Active Substance: CLONAZEPAM
  26. XYREM [Suspect]
     Active Substance: SODIUM OXYBATE
     Dosage: 4.5 G, BID
     Route: 048
     Dates: start: 201709, end: 2017

REACTIONS (3)
  - Victim of sexual abuse [Not Recovered/Not Resolved]
  - Incoherent [Unknown]
  - Somnolence [Unknown]

NARRATIVE: CASE EVENT DATE: 201707
